FAERS Safety Report 24107140 (Version 2)
Quarter: 2024Q3

REPORT INFORMATION
  Report Type: Spontaneous
  Country: US (occurrence: US)
  Receive Date: 20240718
  Receipt Date: 20240726
  Transmission Date: 20241017
  Serious: No
  Sender: SANOFI AVENTIS
  Company Number: US-SA-SAC20240715001159

PATIENT
  Sex: Male
  Weight: 86.1 kg

DRUGS (3)
  1. DUPIXENT [Suspect]
     Active Substance: DUPILUMAB
     Indication: Arthritis reactive
     Dosage: 300 MG, QOW
     Route: 058
  2. DUPIXENT [Suspect]
     Active Substance: DUPILUMAB
     Indication: Sarcoidosis
  3. HUMIRA [Concomitant]
     Active Substance: ADALIMUMAB

REACTIONS (6)
  - Eye disorder [Unknown]
  - Fatigue [Unknown]
  - Ocular hyperaemia [Unknown]
  - Intraocular pressure test [Unknown]
  - Rash [Unknown]
  - Product use in unapproved indication [Unknown]
